FAERS Safety Report 15807103 (Version 1)
Quarter: 2018Q4

REPORT INFORMATION
  Report Type: Spontaneous
  Country: US (occurrence: US)
  Receive Date: 20181214
  Receipt Date: 20181214
  Transmission Date: 20190205
  Serious: Yes (Other)
  Sender: FDA-Public Use
  Company Number: None

PATIENT
  Age: 53 Year
  Sex: Female

DRUGS (1)
  1. HEMPWORK 750 WITH PURE CBD OIL AND HERBAL DROPS PEPPERMINT FLAVOR 1OZ/ [Suspect]
     Active Substance: CANNABIS SATIVA SEED OIL
     Indication: ARTHRITIS
     Route: 048
     Dates: start: 20181119, end: 20181206

REACTIONS (1)
  - Rash [None]

NARRATIVE: CASE EVENT DATE: 20181119
